FAERS Safety Report 14278592 (Version 1)
Quarter: 2017Q4

REPORT INFORMATION
  Report Type: Report from Study
  Country: US (occurrence: US)
  Receive Date: 20171211
  Receipt Date: 20171211
  Transmission Date: 20180321
  Serious: Yes (Death, Other)
  Sender: FDA-Public Use
  Company Number: US-OTSUKA-2016_021838

PATIENT
  Sex: Female

DRUGS (1)
  1. ARIPIPRAZOLE. [Suspect]
     Active Substance: ARIPIPRAZOLE
     Indication: SCHIZOPHRENIA
     Dosage: 30 MG, QD
     Route: 065

REACTIONS (7)
  - Cardiac disorder [Unknown]
  - Cardiac pacemaker insertion [Unknown]
  - Weight increased [Unknown]
  - Cardiac operation [Unknown]
  - Fall [Unknown]
  - Myocardial infarction [Fatal]
  - Stent placement [Unknown]
